FAERS Safety Report 25772624 (Version 2)
Quarter: 2025Q4

REPORT INFORMATION
  Report Type: Spontaneous
  Country: US (occurrence: US)
  Receive Date: 20250908
  Receipt Date: 20251017
  Transmission Date: 20260117
  Serious: Yes (Other)
  Sender: AUROBINDO
  Company Number: US-MLMSERVICE-20250818-PI616558-00152-2

PATIENT
  Age: 62 Year
  Sex: Female
  Weight: 74.9 kg

DRUGS (4)
  1. FLUOROURACIL [Suspect]
     Active Substance: FLUOROURACIL
     Indication: Adenocarcinoma of appendix
     Dosage: 1200 MG/M2, ONCE A DAY ( 1ST CYCLE 4500MG IN 48 HOURS (1200 MG/M2/DAY)  )
     Route: 042
  2. IRINOTECAN [Concomitant]
     Active Substance: IRINOTECAN
     Indication: Adenocarcinoma of appendix
     Dosage: UNK, 11 CYCLES [1ST CYCLE; NEXT TWO CYCLES INPATIENT; FOLLOWED BY ANOTHER 8 CYCLES AS AN OUTPATIENT]
     Route: 065
  3. LEUCOVORIN [Concomitant]
     Active Substance: LEUCOVORIN\LEUCOVORIN CALCIUM
     Indication: Adenocarcinoma of appendix
     Dosage: UNK,11 CYCLES [1ST CYCLE; NEXT TWO CYCLES INPATIENT; FOLLOWED BY ANOTHER 8 CYCLES AS AN OUTPATIENT]
     Route: 065
  4. OXALIPLATIN [Concomitant]
     Active Substance: OXALIPLATIN
     Indication: Adenocarcinoma of appendix
     Dosage: UNK,11 CYCLES [1ST CYCLE; NEXT TWO CYCLES INPATIENT; FOLLOWED BY ANOTHER 8 CYCLES AS AN OUTPATIENT]
     Route: 065

REACTIONS (1)
  - Arteriospasm coronary [Recovered/Resolved]
